FAERS Safety Report 25324075 (Version 1)
Quarter: 2025Q2

REPORT INFORMATION
  Report Type: Spontaneous
  Country: US (occurrence: US)
  Receive Date: 20250516
  Receipt Date: 20250516
  Transmission Date: 20250717
  Serious: No
  Sender: NOVEN
  Company Number: US-NOVEN PHARMACEUTICALS, INC.-2025-NOV-US000179

PATIENT
  Age: 8 Year
  Sex: Male

DRUGS (1)
  1. METHYLPHENIDATE [Suspect]
     Active Substance: METHYLPHENIDATE
     Indication: Attention deficit hyperactivity disorder
     Route: 062
     Dates: start: 202501

REACTIONS (3)
  - Product ineffective [Recovered/Resolved]
  - Application site erythema [Unknown]
  - Application site burn [Unknown]

NARRATIVE: CASE EVENT DATE: 20250101
